FAERS Safety Report 8204918-3 (Version None)
Quarter: 2012Q1

REPORT INFORMATION
  Report Type: 
  Country: None (occurrence: None)
  Receive Date: 20120313
  Receipt Date: 20120306
  Transmission Date: 20120608
  Serious: No
  Sender: FDA-Public Use
  Company Number: US-BAYER-2012-023789

PATIENT

DRUGS (3)
  1. ALEVE (CAPLET) [Suspect]
     Indication: BACK PAIN
     Dosage: 5 DF, UNK
  2. SOMA [Concomitant]
  3. ALEVE (CAPLET) [Suspect]
     Indication: MUSCULOSKELETAL STIFFNESS

REACTIONS (1)
  - MUSCULOSKELETAL PAIN [None]
